FAERS Safety Report 6279489-1 (Version None)
Quarter: 2009Q3

REPORT INFORMATION
  Report Type: 
  Country: None (occurrence: None)
  Receive Date: 20090723
  Receipt Date: 20090713
  Transmission Date: 20100115
  Serious: Yes (Other)
  Sender: FDA-Public Use
  Company Number: JP-PFIZER INC-2009241213

PATIENT

DRUGS (2)
  1. ARGATROBAN [Suspect]
     Dosage: UNK
     Route: 041
  2. RADICUT [Concomitant]
     Dosage: UNK
     Route: 041

REACTIONS (1)
  - SYMPATHOMIMETIC EFFECT [None]
